FAERS Safety Report 6898879-7 (Version None)
Quarter: 2010Q3

REPORT INFORMATION
  Report Type: 
  Country: None (occurrence: None)
  Receive Date: 20100802
  Receipt Date: 20071213
  Transmission Date: 20110219
  Serious: No
  Sender: FDA-Public Use
  Company Number: US-PFIZER INC-2007104799

PATIENT
  Sex: Female

DRUGS (11)
  1. LYRICA [Suspect]
     Indication: HYPOAESTHESIA
     Dosage: 75MG BID EVERY DAY TDD:150MG
     Route: 048
     Dates: start: 20071001
  2. LYRICA [Suspect]
     Indication: DIABETIC NEUROPATHY
  3. TRILEPTAL [Concomitant]
  4. KLONOPIN [Concomitant]
  5. ZOLOFT [Concomitant]
  6. LISINOPRIL [Concomitant]
  7. LANTUS [Concomitant]
  8. NOVOLOG [Concomitant]
  9. ESTRADIOL [Concomitant]
  10. SIMVASTATIN [Concomitant]
  11. ACETYLSALICYLIC ACID SRT [Concomitant]

REACTIONS (1)
  - DRY MOUTH [None]
